FAERS Safety Report 5706945-4 (Version None)
Quarter: 2008Q2

REPORT INFORMATION
  Report Type: 
  Country: None (occurrence: None)
  Receive Date: 20080415
  Receipt Date: 20080415
  Transmission Date: 20081010
  Serious: Yes (Life-Threatening)
  Sender: FDA-Public Use
  Company Number: None

PATIENT
  Age: 37 Year
  Sex: Female
  Weight: 77.1115 kg

DRUGS (1)
  1. CYMBALTA [Suspect]
     Indication: DEPRESSION
     Dosage: 1 1 PO
     Route: 048
     Dates: start: 20060101, end: 20070101

REACTIONS (3)
  - MORBID THOUGHTS [None]
  - OBSESSIVE THOUGHTS [None]
  - SUICIDAL IDEATION [None]
